FAERS Safety Report 5976751-4 (Version None)
Quarter: 2008Q4

REPORT INFORMATION
  Report Type: 
  Country: None (occurrence: None)
  Receive Date: 20081201
  Receipt Date: 20081201
  Transmission Date: 20090506
  Serious: Yes (Death)
  Sender: FDA-Public Use
  Company Number: None

PATIENT
  Sex: Female
  Weight: 119 kg

DRUGS (2)
  1. AVASTIN [Suspect]
     Indication: BREAST CANCER METASTATIC
     Dosage: 15 MG/KG Q3WK IV LAST 2 TU'S
     Route: 042
     Dates: start: 20080826
  2. AVASTIN [Suspect]
     Indication: BREAST CANCER METASTATIC
     Dosage: 15 MG/KG Q3WK IV LAST 2 TU'S
     Route: 042
     Dates: start: 20080916

REACTIONS (2)
  - CENTRAL NERVOUS SYSTEM LESION [None]
  - INTRAVENTRICULAR HAEMORRHAGE [None]
